FAERS Safety Report 7738235-2 (Version None)
Quarter: 2011Q3

REPORT INFORMATION
  Report Type: 
  Country: None (occurrence: None)
  Receive Date: 20110908
  Receipt Date: 20110825
  Transmission Date: 20111222
  Serious: Yes (Other)
  Sender: FDA-Public Use
  Company Number: IT-PFIZER INC-2011149684

PATIENT
  Age: 69 Year
  Sex: Female

DRUGS (6)
  1. PANTOPRAZOLE [Concomitant]
     Dosage: 40 MG, UNK
  2. ENOXAPARIN SODIUM [Concomitant]
  3. DEXAMETHASONE [Concomitant]
  4. CARDIOXANE [Concomitant]
  5. EPIRUBICIN HYDROCHLORIDE [Suspect]
     Indication: UTERINE CANCER
     Dosage: 120 MG, CYCLIC
     Route: 042
     Dates: start: 20110307, end: 20110518
  6. CISPLATIN [Suspect]
     Indication: UTERINE CANCER
     Dosage: 85 MG, CYCLIC
     Route: 042
     Dates: start: 20110307, end: 20110518

REACTIONS (4)
  - MALAISE [None]
  - NAUSEA [None]
  - DYSPEPSIA [None]
  - ANAEMIA [None]
